FAERS Safety Report 12685183 (Version 1)
Quarter: 2016Q3

REPORT INFORMATION
  Report Type: Spontaneous
  Country: AT (occurrence: AT)
  Receive Date: 20160825
  Receipt Date: 20160825
  Transmission Date: 20161109
  Serious: Yes (Hospitalization)
  Sender: FDA-Public Use
  Company Number: AT-UCBSA-2016032278

PATIENT
  Age: 63 Year
  Sex: Female
  Weight: 65 kg

DRUGS (7)
  1. APREDNISLON [Concomitant]
     Active Substance: PREDNISOLONE
     Indication: PRODUCT USED FOR UNKNOWN INDICATION
     Dosage: UNK
     Dates: start: 201603, end: 2016
  2. IMUREK [Concomitant]
     Active Substance: AZATHIOPRINE
     Indication: PRODUCT USED FOR UNKNOWN INDICATION
     Dosage: 50 MG, ONCE DAILY (QD)
  3. SIMPONI [Concomitant]
     Active Substance: GOLIMUMAB
     Indication: PRODUCT USED FOR UNKNOWN INDICATION
     Dosage: 50 MG, MONTHLY (QM)
     Route: 058
  4. APREDNISLON [Concomitant]
     Active Substance: PREDNISOLONE
     Dosage: 5 MG, ONCE DAILY (QD)
     Dates: start: 201607
  5. ORENCIA [Concomitant]
     Active Substance: ABATACEPT
     Indication: PRODUCT USED FOR UNKNOWN INDICATION
     Dosage: UNK
  6. ETX [Concomitant]
     Active Substance: ETORICOXIB
     Indication: PRODUCT USED FOR UNKNOWN INDICATION
     Dosage: 10 MG, WEEKLY (QW)
  7. CIMZIA [Suspect]
     Active Substance: CERTOLIZUMAB PEGOL
     Indication: CROHN^S DISEASE
     Dosage: 200 MG, EV 2 WEEKS(QOW)
     Route: 058
     Dates: start: 201602, end: 201603

REACTIONS (3)
  - Diarrhoea haemorrhagic [Unknown]
  - Pneumonia [Recovered/Resolved]
  - Synovial disorder [Unknown]

NARRATIVE: CASE EVENT DATE: 2016
